FAERS Safety Report 7425517-7 (Version None)
Quarter: 2011Q2

REPORT INFORMATION
  Report Type: 
  Country: None (occurrence: None)
  Receive Date: 20110420
  Receipt Date: 20110412
  Transmission Date: 20111010
  Serious: Yes (Hospitalization)
  Sender: FDA-Public Use
  Company Number: DK-TEVA-182441ISR

PATIENT
  Sex: Male

DRUGS (8)
  1. METHOTREXATE [Suspect]
     Dates: start: 20050509, end: 20050601
  2. TRAMADOL HCL [Concomitant]
     Dosage: 200 MILLIGRAM;
  3. FOLIC ACID [Concomitant]
  4. METHOTREXATE [Suspect]
     Indication: PSORIATIC ARTHROPATHY
     Dates: start: 20020101, end: 20050509
  5. METHOTREXATE [Suspect]
     Dates: start: 20050601, end: 20050726
  6. DICLOFENAC [Concomitant]
     Dosage: 150 MILLIGRAM;
  7. PANTOPRAZOLE [Concomitant]
     Dosage: 20 MILLIGRAM;
  8. PARACETAMOL [Concomitant]
     Dosage: 400 MILLIGRAM;

REACTIONS (7)
  - ARTHRITIS [None]
  - IMMUNOSUPPRESSION [None]
  - DYSPNOEA [None]
  - PHOTOSENSITIVITY REACTION [None]
  - TUBERCULOSIS [None]
  - PLEURAL EFFUSION [None]
  - CONDITION AGGRAVATED [None]
